FAERS Safety Report 10392853 (Version 1)
Quarter: 2014Q3

REPORT INFORMATION
  Report Type: Spontaneous
  Country: FR (occurrence: FR)
  Receive Date: 20140819
  Receipt Date: 20140819
  Transmission Date: 20150326
  Serious: Yes (Life-Threatening, Hospitalization)
  Sender: FDA-Public Use
  Company Number: FR-ROCHE-1449949

PATIENT
  Age: 59 Year
  Sex: Male

DRUGS (9)
  1. TOPALGIC (FRANCE) [Concomitant]
     Active Substance: TRAMADOL
  2. HERCEPTIN [Suspect]
     Active Substance: TRASTUZUMAB
     Indication: OESOPHAGEAL ADENOCARCINOMA
     Route: 042
     Dates: start: 20140710
  3. CISPLATINE MYLAN [Suspect]
     Active Substance: CISPLATIN
     Indication: OESOPHAGEAL ADENOCARCINOMA
     Route: 042
     Dates: start: 20140710
  4. EPOETIN ZETA [Concomitant]
     Active Substance: ERYTHROPOIETIN
  5. GRANOCYTE [Concomitant]
     Active Substance: LENOGRASTIM
  6. PARACETAMOL [Concomitant]
     Active Substance: ACETAMINOPHEN
     Indication: ABDOMINAL PAIN
  7. FLUOROURACILE [Suspect]
     Active Substance: FLUOROURACIL
     Indication: OESOPHAGEAL ADENOCARCINOMA
     Route: 042
     Dates: start: 20140710
  8. DOLIPRANE [Concomitant]
     Active Substance: ACETAMINOPHEN
  9. FENTANYL. [Concomitant]
     Active Substance: FENTANYL
     Route: 065

REACTIONS (1)
  - Gastric perforation [Recovering/Resolving]

NARRATIVE: CASE EVENT DATE: 20140723
